FAERS Safety Report 15383653 (Version 3)
Quarter: 2018Q3

REPORT INFORMATION
  Report Type: Report from Study
  Country: US (occurrence: US)
  Receive Date: 20180913
  Receipt Date: 20180928
  Transmission Date: 20181010
  Serious: Yes (Hospitalization, Other)
  Sender: FDA-Public Use
  Company Number: US-JAZZ-2018-US-013451

PATIENT
  Sex: Female

DRUGS (18)
  1. SYSTANE (HYPROMELLOSE 2910 (4000 MPA.S)) [Concomitant]
     Active Substance: HYPROMELLOSE 2910 (4000 MPA.S)
  2. SINGULAIR [Concomitant]
     Active Substance: MONTELUKAST SODIUM
  3. WELLBUTRIN [Concomitant]
     Active Substance: BUPROPION HYDROCHLORIDE
  4. DOXYCYCLINE HYCLATE. [Concomitant]
     Active Substance: DOXYCYCLINE HYCLATE
  5. FOCALIN [Concomitant]
     Active Substance: DEXMETHYLPHENIDATE HYDROCHLORIDE
  6. XYREM [Suspect]
     Active Substance: SODIUM OXYBATE
     Dosage: 4.5 G, BID
     Route: 048
     Dates: start: 201809, end: 201809
  7. CALCIUM CITRATE WITH VITAMIN D3 [Concomitant]
  8. XYREM [Suspect]
     Active Substance: SODIUM OXYBATE
     Dosage: DOSE ADJUSTMENT
     Route: 048
     Dates: start: 201809, end: 201809
  9. BIOTIN [Concomitant]
     Active Substance: BIOTIN
  10. ZYRTEC [Concomitant]
     Active Substance: CETIRIZINE HYDROCHLORIDE
  11. SUDAFED [Suspect]
     Active Substance: PSEUDOEPHEDRINE HYDROCHLORIDE
     Indication: PRODUCT USED FOR UNKNOWN INDICATION
  12. AZELASTINE. [Concomitant]
     Active Substance: AZELASTINE HYDROCHLORIDE
  13. SOOLANTRA [Concomitant]
     Active Substance: IVERMECTIN
  14. XYREM [Suspect]
     Active Substance: SODIUM OXYBATE
     Indication: NARCOLEPSY
     Dosage: 2.25 G, BID
     Route: 048
     Dates: start: 201808, end: 201809
  15. FISH OIL [Concomitant]
     Active Substance: FISH OIL
  16. NUVIGIL [Concomitant]
     Active Substance: ARMODAFINIL
  17. OMEPRAZOLE. [Concomitant]
     Active Substance: OMEPRAZOLE
  18. PLECANATIDE [Concomitant]
     Active Substance: PLECANATIDE

REACTIONS (6)
  - Blood magnesium decreased [Unknown]
  - Palpitations [Unknown]
  - Sinusitis [Unknown]
  - Food allergy [Unknown]
  - Blood phosphorus decreased [Unknown]
  - Paraesthesia [Unknown]

NARRATIVE: CASE EVENT DATE: 2018
